FAERS Safety Report 16097467 (Version 2)
Quarter: 2019Q2

REPORT INFORMATION
  Report Type: Spontaneous
  Country: US (occurrence: US)
  Receive Date: 20190320
  Receipt Date: 20190401
  Transmission Date: 20190711
  Serious: Yes (Death, Other)
  Sender: FDA-Public Use
  Company Number: US-ASTRAZENECA-2018SF13957

PATIENT

DRUGS (10)
  1. CLOPIDOGREL [Concomitant]
     Active Substance: CLOPIDOGREL BISULFATE
     Dosage: 75.0MG UNKNOWN
     Dates: start: 20140906
  2. CIPROFLOXACIN. [Concomitant]
     Active Substance: CIPROFLOXACIN
     Dosage: 75.0MG UNKNOWN
     Dates: start: 20140906
  3. ATORVASTATIN [Concomitant]
     Active Substance: ATORVASTATIN
     Dosage: 80.0MG UNKNOWN
     Dates: start: 20150604
  4. CALCITRIOL. [Concomitant]
     Active Substance: CALCITRIOL
     Dosage: 0.5UG UNKNOWN
     Dates: start: 20141022
  5. FUROSEMIDE. [Concomitant]
     Active Substance: FUROSEMIDE
     Dosage: 20.0MG UNKNOWN
     Dates: start: 20141229
  6. NEXIUM [Suspect]
     Active Substance: ESOMEPRAZOLE MAGNESIUM
     Dosage: VARIOUS YEARS AND DATES.
     Route: 048
  7. NEXIUM [Suspect]
     Active Substance: ESOMEPRAZOLE MAGNESIUM
     Dosage: GENERIC40.0MG UNKNOWN
     Route: 065
     Dates: start: 20150306
  8. GABAPENTIN. [Concomitant]
     Active Substance: GABAPENTIN
     Dosage: 75.0MG UNKNOWN
     Dates: start: 20140906
  9. NEXIUM [Suspect]
     Active Substance: ESOMEPRAZOLE MAGNESIUM
     Dosage: 40.0MG UNKNOWN
     Route: 048
     Dates: start: 20140926
  10. LEVOTHYROXINE. [Concomitant]
     Active Substance: LEVOTHYROXINE
     Dosage: 150.0UG UNKNOWN
     Dates: start: 20141017

REACTIONS (5)
  - Rebound acid hypersecretion [Unknown]
  - Death [Fatal]
  - Renal injury [Unknown]
  - Renal failure [Unknown]
  - Chronic kidney disease [Unknown]
